FAERS Safety Report 17807672 (Version 1)
Quarter: 2020Q2

REPORT INFORMATION
  Report Type: Spontaneous
  Country: US (occurrence: US)
  Receive Date: 20200520
  Receipt Date: 20200520
  Transmission Date: 20200714
  Serious: Yes (Hospitalization)
  Sender: FDA-Public Use
  Company Number: None

PATIENT
  Sex: Female

DRUGS (2)
  1. FONDAPARINUX [Suspect]
     Active Substance: FONDAPARINUX
     Indication: MULTIPLE SCLEROSIS
     Route: 058
  2. NA [Concomitant]
     Active Substance: SODIUM

REACTIONS (2)
  - Hospitalisation [None]
  - Therapy interrupted [None]
